FAERS Safety Report 19903906 (Version 2)
Quarter: 2021Q4

REPORT INFORMATION
  Report Type: Spontaneous
  Country: IN (occurrence: IN)
  Receive Date: 20211001
  Receipt Date: 20211111
  Transmission Date: 20220303
  Serious: Yes (Hospitalization, Other)
  Sender: FDA-Public Use
  Company Number: None

PATIENT
  Age: 15 Year
  Sex: Male

DRUGS (3)
  1. MYCOPHENOLATE MOFETIL [Suspect]
     Active Substance: MYCOPHENOLATE MOFETIL
     Indication: Immunosuppressant drug therapy
     Dosage: UNK
     Route: 065
  2. TACROLIMUS [Suspect]
     Active Substance: TACROLIMUS
     Indication: Immunosuppressant drug therapy
     Dosage: UNK
     Route: 065
  3. ITRACONAZOLE [Suspect]
     Active Substance: ITRACONAZOLE
     Indication: Product used for unknown indication
     Dosage: 200 MILLIGRAM, BID
     Route: 048

REACTIONS (4)
  - Haemophagocytic lymphohistiocytosis [Recovered/Resolved]
  - Drug level increased [Recovered/Resolved]
  - Histoplasmosis [Recovered/Resolved]
  - Drug interaction [Unknown]
